FAERS Safety Report 10466865 (Version 2)
Quarter: 2016Q1

REPORT INFORMATION
  Report Type: Report from Study
  Country: CA (occurrence: CA)
  Receive Date: 20140922
  Receipt Date: 20160127
  Transmission Date: 20160525
  Serious: Yes (Hospitalization, Other)
  Sender: FDA-Public Use
  Company Number: CA-SA-2014SA125535

PATIENT
  Age: 92 Year
  Sex: Male

DRUGS (3)
  1. LASIX [Suspect]
     Active Substance: FUROSEMIDE
     Indication: CARDIAC FAILURE CONGESTIVE
     Route: 048
  2. LASIX [Suspect]
     Active Substance: FUROSEMIDE
     Indication: CARDIAC FAILURE CONGESTIVE
     Route: 042
  3. LUPRON [Suspect]
     Active Substance: LEUPROLIDE ACETATE
     Indication: PROSTATE CANCER
     Dosage: FORM- POWDER FOR SUSPENSION, SUSTAINED RELEASE
     Route: 030
     Dates: start: 20120509

REACTIONS (20)
  - Oedema peripheral [Recovered/Resolved]
  - Stress [Recovering/Resolving]
  - Atrial fibrillation [Recovering/Resolving]
  - Brain natriuretic peptide increased [Recovering/Resolving]
  - Dyspnoea [Recovered/Resolved]
  - Oxygen saturation decreased [Recovering/Resolving]
  - Asthenia [Recovering/Resolving]
  - Bundle branch block right [Recovering/Resolving]
  - Cardiac failure congestive [Recovered/Resolved]
  - Joint swelling [Recovering/Resolving]
  - Blood creatinine increased [Recovering/Resolving]
  - Hypotension [Recovering/Resolving]
  - Gait disturbance [Recovering/Resolving]
  - Pleural effusion [Recovering/Resolving]
  - Asthenia [Recovered/Resolved]
  - White blood cell count increased [Recovered/Resolved]
  - Chest X-ray abnormal [Recovering/Resolving]
  - Angiopathy [Recovering/Resolving]
  - Blood albumin decreased [Recovering/Resolving]
  - Pneumonia [Recovered/Resolved]

NARRATIVE: CASE EVENT DATE: 20130415
